FAERS Safety Report 5077889-9 (Version None)
Quarter: 2006Q3

REPORT INFORMATION
  Report Type: 
  Country: None (occurrence: None)
  Receive Date: 20060807
  Receipt Date: 20050926
  Transmission Date: 20061208
  Serious: Yes (Hospitalization)
  Sender: FDA-Public Use
  Company Number: 05AUS0192

PATIENT
  Age: 60 Year
  Sex: Male

DRUGS (2)
  1. AGGRASTAT [Suspect]
     Indication: DRUG USE FOR UNKNOWN INDICATION
     Dates: start: 20050612, end: 20050613
  2. HEPARIN SODIUM [Suspect]
     Indication: DRUG USE FOR UNKNOWN INDICATION
     Dates: start: 20050612, end: 20050613

REACTIONS (1)
  - THROMBOCYTOPENIA [None]
